FAERS Safety Report 9309013 (Version 1)
Quarter: 2013Q2

REPORT INFORMATION
  Report Type: Spontaneous
  Country: US (occurrence: US)
  Receive Date: 20130524
  Receipt Date: 20130524
  Transmission Date: 20140414
  Serious: Yes (Death)
  Sender: FDA-Public Use
  Company Number: US-OPTIMER-20130192

PATIENT
  Age: 55 Year
  Sex: Male

DRUGS (3)
  1. FIDAXOMICIN [Suspect]
     Indication: CLOSTRIDIUM DIFFICILE COLITIS
     Dosage: UNK
     Dates: start: 20130211, end: 20130220
  2. DAPTOMYCIN [Concomitant]
     Dosage: UNK
     Dates: start: 20130216, end: 20130220
  3. CEFTAROLINE [Concomitant]
     Dosage: UNK
     Dates: start: 20130208, end: 20130214

REACTIONS (3)
  - Cardiac arrest [Fatal]
  - Blood creatinine increased [Unknown]
  - White blood cell count increased [Unknown]
